FAERS Safety Report 12459887 (Version 4)
Quarter: 2016Q3

REPORT INFORMATION
  Report Type: Report from Study
  Country: HU (occurrence: HU)
  Receive Date: 20160613
  Receipt Date: 20160809
  Transmission Date: 20161109
  Serious: Yes (Death, Other)
  Sender: FDA-Public Use
  Company Number: HU-TOLMAR, INC.-2016HU005685

PATIENT
  Sex: Male

DRUGS (1)
  1. ELIGARD [Suspect]
     Active Substance: LEUPROLIDE ACETATE
     Indication: PROSTATE CANCER
     Route: 065

REACTIONS (4)
  - Cachexia [Fatal]
  - Ileus [Fatal]
  - Colon cancer metastatic [Fatal]
  - Colon cancer [Fatal]

NARRATIVE: CASE EVENT DATE: 20160506
